FAERS Safety Report 20558435 (Version 7)
Quarter: 2022Q3

REPORT INFORMATION
  Report Type: Report from Study
  Country: US (occurrence: US)
  Receive Date: 20220307
  Receipt Date: 20220812
  Transmission Date: 20221027
  Serious: Yes (Hospitalization, Other)
  Sender: FDA-Public Use
  Company Number: US-NOVARTISTESTPH-NVSC2022US052813

PATIENT
  Sex: Male

DRUGS (4)
  1. ENTRESTO [Suspect]
     Active Substance: SACUBITRIL\VALSARTAN
     Indication: Cardiac failure
     Dosage: 1 DOSAGE FORM, BID (24/26 MG)
     Route: 048
     Dates: start: 20220119
  2. CLOPIDOGREL [Suspect]
     Active Substance: CLOPIDOGREL BISULFATE
     Indication: Blood disorder
     Dosage: UNK
     Route: 048
     Dates: start: 2021, end: 202201
  3. ATORVASTATIN [Suspect]
     Active Substance: ATORVASTATIN
     Indication: Blood cholesterol increased
     Dosage: 20 MG, QD
     Route: 048
  4. ATORVASTATIN [Suspect]
     Active Substance: ATORVASTATIN
     Dosage: 40 MG
     Route: 048

REACTIONS (14)
  - Urinary bladder haemorrhage [Recovered/Resolved]
  - Haematuria [Recovered/Resolved]
  - Nocturia [Recovered/Resolved]
  - Anaemia [Recovered/Resolved]
  - COVID-19 [Unknown]
  - Pyrexia [Recovering/Resolving]
  - Nasal congestion [Unknown]
  - Rhinorrhoea [Unknown]
  - Chills [Unknown]
  - Cough [Unknown]
  - Restlessness [Unknown]
  - Contusion [Recovered/Resolved]
  - Weight increased [Unknown]
  - Hypoacusis [Unknown]

NARRATIVE: CASE EVENT DATE: 20210101
